FAERS Safety Report 19845381 (Version 2)
Quarter: 2021Q4

REPORT INFORMATION
  Report Type: Report from Study
  Country: KZ (occurrence: KZ)
  Receive Date: 20210917
  Receipt Date: 20211007
  Transmission Date: 20220303
  Serious: Yes (Hospitalization, Other)
  Sender: FDA-Public Use
  Company Number: NVSC2021KZ181882

PATIENT
  Age: 7 Month
  Sex: Female
  Weight: 6.1 kg

DRUGS (3)
  1. ZOLGENSMA [Suspect]
     Active Substance: ONASEMNOGENE ABEPARVOVEC-XIOI
     Indication: Spinal muscular atrophy
     Dosage: 1 MG/KG/ 0.25 MG/KG/ 34.9, ONCE/SINGLE
     Route: 042
     Dates: start: 20210715
  2. PREDNISOLONE [Concomitant]
     Active Substance: PREDNISOLONE
     Indication: Product used for unknown indication
     Dosage: 1 MG/KG
     Route: 065
     Dates: start: 20210714
  3. PREDNISOLONE [Concomitant]
     Active Substance: PREDNISOLONE
     Dosage: 0.25 MG/KG
     Route: 065

REACTIONS (9)
  - Pneumonia [Recovering/Resolving]
  - Respiratory failure [Unknown]
  - Weight gain poor [Recovering/Resolving]
  - Pyrexia [Recovered/Resolved]
  - Vomiting [Recovered/Resolved]
  - Tachycardia [Unknown]
  - Muscular weakness [Unknown]
  - Aphonia [Unknown]
  - Hyperhidrosis [Unknown]

NARRATIVE: CASE EVENT DATE: 20210717
